FAERS Safety Report 7860119-X (Version None)
Quarter: 2011Q4

REPORT INFORMATION
  Report Type: 
  Country: None (occurrence: None)
  Receive Date: 20111027
  Receipt Date: 20111020
  Transmission Date: 20120403
  Serious: Yes (Hospitalization)
  Sender: FDA-Public Use
  Company Number: FR-SANOFI-AVENTIS-2011SA069033

PATIENT
  Age: 68 Year
  Sex: Male

DRUGS (9)
  1. ETOPOSIDE [Suspect]
     Dates: start: 20110916
  2. FLECAINIDE ACETATE [Suspect]
  3. LOVENOX [Suspect]
  4. PIPERACILLIN AND TAZOBACTAM [Suspect]
     Route: 042
     Dates: start: 20110915
  5. CORTICOSTEROID NOS [Concomitant]
     Dates: start: 20110826
  6. PREVISCAN [Concomitant]
     Route: 048
  7. ALLOPURINOL [Concomitant]
  8. AMIKACIN [Suspect]
     Dates: start: 20110915
  9. VITAMIN K TAB [Concomitant]

REACTIONS (5)
  - COMA [None]
  - CYANOSIS [None]
  - DYSPNOEA [None]
  - VENTRICULAR TACHYCARDIA [None]
  - ANURIA [None]
